FAERS Safety Report 8406019-8 (Version None)
Quarter: 2012Q2

REPORT INFORMATION
  Report Type: 
  Country: None (occurrence: None)
  Receive Date: 20120529
  Receipt Date: 20101126
  Transmission Date: 20120825
  Serious: Yes (Hospitalization)
  Sender: FDA-Public Use
  Company Number: 010801

PATIENT
  Age: 47 Year
  Sex: Male
  Weight: 54 kg

DRUGS (15)
  1. PLETAL [Suspect]
     Indication: HYPERLIPIDAEMIA
     Dosage: 100 MG, BID, ORAL
     Route: 048
     Dates: start: 20100817, end: 20100907
  2. MAGMITT (MAGNESIUM OXIDE) [Concomitant]
  3. BERIZYM (PANCREATIC AENZYME COMBINED DRUG) [Concomitant]
  4. JUVELA N (TOCOPHERYL NICONINATE) [Concomitant]
  5. TGETRAMIDE (MIANSERIN HYDROCHLORIDE) [Concomitant]
  6. QUAZEPAM [Concomitant]
  7. VANCOMIN (MECOBALAMIN) [Concomitant]
  8. BIO-THREE (CLOSTRIDIUM BUTYRICUM COMBINED DRUG) [Concomitant]
  9. EPADEL (ETHYL ICOSAPENTATE) [Concomitant]
  10. NOCBIN (DISULFIRAM) [Concomitant]
  11. LEVOTOMIN (LEVOMEPROMAZINE MALEATE) [Concomitant]
  12. FAMOTIDINE [Concomitant]
  13. SILECE FLUNITRAZEPAM) [Concomitant]
  14. PAXIL [Concomitant]
  15. DIAZEPAM [Concomitant]

REACTIONS (1)
  - PLATELET COUNT INCREASED [None]
